FAERS Safety Report 8417085-8 (Version None)
Quarter: 2012Q2

REPORT INFORMATION
  Report Type: 
  Country: None (occurrence: None)
  Receive Date: 20120606
  Receipt Date: 20120530
  Transmission Date: 20120825
  Serious: Yes (Death)
  Sender: FDA-Public Use
  Company Number: US-FRI-1000030934

PATIENT
  Sex: Male

DRUGS (3)
  1. VIIBRYD [Suspect]
     Dosage: 40 MG
     Route: 048
     Dates: start: 20120101, end: 20120501
  2. VIIBRYD [Suspect]
     Dosage: 10 MG
     Route: 048
     Dates: start: 20120101, end: 20120101
  3. VIIBRYD [Suspect]
     Dosage: 20 MG
     Route: 048
     Dates: start: 20120101, end: 20120101

REACTIONS (1)
  - COMPLETED SUICIDE [None]
